FAERS Safety Report 16609322 (Version 1)
Quarter: 2019Q3

REPORT INFORMATION
  Report Type: Report from Study
  Country: GB (occurrence: GB)
  Receive Date: 20190722
  Receipt Date: 20190722
  Transmission Date: 20191004
  Serious: Yes (Life-Threatening, Other)
  Sender: FDA-Public Use
  Company Number: GB-RECRO GAINESVILLE LLC-REPH-2019-000126

PATIENT
  Age: 39 Year
  Sex: Female

DRUGS (1)
  1. VERAPAMIL HYDROCHLORIDE SUSTAINED RELEASE [Suspect]
     Active Substance: VERAPAMIL HYDROCHLORIDE
     Dosage: AT LEAST 1200 MILLIGRAM, ONE TIME DOSE
     Route: 048

REACTIONS (15)
  - Brain injury [Not Recovered/Not Resolved]
  - Bradycardia [Unknown]
  - Pneumonia [Unknown]
  - Electrocardiogram P wave abnormal [Unknown]
  - Overdose [Recovered/Resolved]
  - Haematemesis [Unknown]
  - Atrioventricular block first degree [Unknown]
  - Blood pressure immeasurable [Recovered/Resolved]
  - Hypotension [Recovered/Resolved]
  - Metabolic acidosis [Unknown]
  - Hyperglycaemia [Unknown]
  - Nodal rhythm [Unknown]
  - Conduction disorder [Unknown]
  - Coma [Recovered/Resolved]
  - Anuria [Unknown]
